FAERS Safety Report 6620501-5 (Version None)
Quarter: 2010Q1

REPORT INFORMATION
  Report Type: 
  Country: None (occurrence: None)
  Receive Date: 20100309
  Receipt Date: 20100303
  Transmission Date: 20100710
  Serious: Yes (Hospitalization, Other)
  Sender: FDA-Public Use
  Company Number: NL-BAYER-200935056GPV

PATIENT
  Age: 67 Year
  Sex: Female

DRUGS (11)
  1. NEXAVAR [Suspect]
     Indication: THYROID CANCER
     Dosage: 1 + 2 TABLET
     Route: 048
     Dates: start: 20091121
  2. NEXAVAR [Suspect]
     Dosage: TOTAL DAILY DOSE: 800 MG  UNIT DOSE: 200 MG
     Route: 048
     Dates: start: 20090918, end: 20091121
  3. NOVORAPID [Concomitant]
     Indication: DIABETES MELLITUS
     Dosage: 26-28-24 IU
     Route: 058
  4. LANTUS [Concomitant]
     Indication: DIABETES MELLITUS
     Route: 058
  5. SIMVASTATIN [Concomitant]
     Indication: BLOOD CHOLESTEROL INCREASED
     Dosage: TOTAL DAILY DOSE: 20 MG
     Route: 048
  6. ATENOLOL [Concomitant]
     Indication: BLOOD PRESSURE INCREASED
     Dosage: TOTAL DAILY DOSE: 125 MG
     Route: 048
  7. THYRAX [Concomitant]
     Indication: THYROID THERAPY
     Dosage: TOTAL DAILY DOSE: 0.2 MG
     Route: 048
  8. FORTZAAR [Concomitant]
     Indication: DIURETIC THERAPY
     Dosage: 100/25
     Route: 048
  9. OXYCODON [Concomitant]
     Indication: ANALGESIC THERAPY
     Dosage: TOTAL DAILY DOSE: 10 MG
     Route: 048
  10. PARACETAMOL [Concomitant]
  11. CALCIUM CAD [Concomitant]
     Indication: BLOOD CALCIUM DECREASED
     Dosage: 1000/880 NOS

REACTIONS (17)
  - AGEUSIA [None]
  - ALOPECIA [None]
  - ARTHRALGIA [None]
  - BLISTER [None]
  - BLOOD CALCIUM DECREASED [None]
  - BLOOD GLUCOSE DECREASED [None]
  - CHILLS [None]
  - DIARRHOEA [None]
  - DRY MOUTH [None]
  - DRY THROAT [None]
  - HAIR GROWTH ABNORMAL [None]
  - NAUSEA [None]
  - PAIN IN EXTREMITY [None]
  - PYREXIA [None]
  - SKIN DEPIGMENTATION [None]
  - THYROID CANCER [None]
  - TUMOUR PAIN [None]
